FAERS Safety Report 7689296-0 (Version None)
Quarter: 2011Q3

REPORT INFORMATION
  Report Type: 
  Country: None (occurrence: None)
  Receive Date: 20110817
  Receipt Date: 20110805
  Transmission Date: 20111222
  Serious: Yes (Other)
  Sender: FDA-Public Use
  Company Number: US-PFIZER INC-2011129905

PATIENT
  Sex: Female

DRUGS (2)
  1. PRISTIQ [Suspect]
     Indication: DEPRESSION
     Dosage: 50 MG, 1X/DAY
     Route: 048
     Dates: start: 20100613, end: 20110101
  2. SEROQUEL [Suspect]
     Dosage: UNK

REACTIONS (3)
  - CYSTITIS [None]
  - RENAL FAILURE [None]
  - AGITATION [None]
